FAERS Safety Report 4610100-9 (Version None)
Quarter: 2005Q1

REPORT INFORMATION
  Report Type: 
  Country: None (occurrence: None)
  Receive Date: 20050314
  Receipt Date: 20050228
  Transmission Date: 20050727
  Serious: Yes (Other)
  Sender: FDA-Public Use
  Company Number: HQWYE539421JUN04

PATIENT
  Age: 48 Year
  Sex: Male
  Weight: 99.88 kg

DRUGS (16)
  1. EFFEXOR XR [Suspect]
     Indication: ANXIETY
     Dosage: SEE IMAGE
     Route: 048
     Dates: start: 20020101, end: 20020101
  2. EFFEXOR XR [Suspect]
     Indication: STRESS
     Dosage: SEE IMAGE
     Route: 048
     Dates: start: 20020101, end: 20020101
  3. EFFEXOR XR [Suspect]
     Indication: ANXIETY
     Dosage: SEE IMAGE
     Route: 048
     Dates: start: 20020101, end: 20020101
  4. EFFEXOR XR [Suspect]
     Indication: STRESS
     Dosage: SEE IMAGE
     Route: 048
     Dates: start: 20020101, end: 20020101
  5. EFFEXOR XR [Suspect]
     Indication: ANXIETY
     Dosage: SEE IMAGE
     Route: 048
     Dates: start: 20020101, end: 20020101
  6. EFFEXOR XR [Suspect]
     Indication: STRESS
     Dosage: SEE IMAGE
     Route: 048
     Dates: start: 20020101, end: 20020101
  7. EFFEXOR XR [Suspect]
     Indication: ANXIETY
     Dosage: SEE IMAGE
     Route: 048
     Dates: start: 20020601, end: 20021001
  8. EFFEXOR XR [Suspect]
     Indication: STRESS
     Dosage: SEE IMAGE
     Route: 048
     Dates: start: 20020601, end: 20021001
  9. PLENDIL [Concomitant]
  10. ZOCOR [Concomitant]
  11. INDERAL LA [Concomitant]
  12. ETODOLAC [Concomitant]
  13. ALLEGRA [Concomitant]
  14. TRICOR [Concomitant]
  15. ZITHROMAX [Concomitant]
  16. TRIMOX [Concomitant]

REACTIONS (10)
  - ASTHENIA [None]
  - BRUXISM [None]
  - CHEST PAIN [None]
  - DRUG DEPENDENCE [None]
  - DRUG WITHDRAWAL SYNDROME [None]
  - DYSPHEMIA [None]
  - FULL BLOOD COUNT ABNORMAL [None]
  - PRESSURE OF SPEECH [None]
  - RED BLOOD CELL COUNT DECREASED [None]
  - VISION BLURRED [None]
